FAERS Safety Report 24349007 (Version 1)
Quarter: 2024Q3

REPORT INFORMATION
  Report Type: Spontaneous
  Country: BR (occurrence: BR)
  Receive Date: 20240923
  Receipt Date: 20240923
  Transmission Date: 20241017
  Serious: Yes (Other)
  Sender: ACCORD
  Company Number: BR-Accord-447278

PATIENT
  Age: 64 Year
  Sex: Male

DRUGS (2)
  1. OXALIPLATIN [Suspect]
     Active Substance: OXALIPLATIN
     Indication: Product used for unknown indication
     Route: 042
  2. LEUCOVORIN [Concomitant]
     Active Substance: LEUCOVORIN\LEUCOVORIN CALCIUM
     Dosage: 800 MG, 2 HOURS

REACTIONS (8)
  - Malaise [Unknown]
  - Nausea [Unknown]
  - Anxiety [Unknown]
  - Hypertension [Unknown]
  - Hypotension [Unknown]
  - Burning sensation [Unknown]
  - Syncope [Unknown]
  - Pallor [Unknown]
